FAERS Safety Report 7491462-4 (Version None)
Quarter: 2011Q2

REPORT INFORMATION
  Report Type: 
  Country: None (occurrence: None)
  Receive Date: 20110519
  Receipt Date: 20110511
  Transmission Date: 20111010
  Serious: Yes (Death, Hospitalization)
  Sender: FDA-Public Use
  Company Number: PHHO2011DE08162

PATIENT
  Sex: Male
  Weight: 75 kg

DRUGS (8)
  1. ENALAPRIL MALEATE [Concomitant]
  2. OMEPRAZOLE [Concomitant]
  3. PREDNISONE [Concomitant]
  4. TASIGNA [Suspect]
     Indication: CHRONIC MYELOID LEUKAEMIA
     Dosage: 400 MG, BID
     Route: 048
     Dates: start: 20050808
  5. BETAHISTINE [Concomitant]
  6. AMLODIPINE [Concomitant]
  7. MAGNESIUM [Concomitant]
  8. HYDROCHLOROTHIAZDE TAB [Concomitant]

REACTIONS (1)
  - BRAIN HERNIATION [None]
